FAERS Safety Report 17768993 (Version 1)
Quarter: 2020Q2

REPORT INFORMATION
  Report Type: Spontaneous
  Country: JP (occurrence: JP)
  Receive Date: 20200512
  Receipt Date: 20200512
  Transmission Date: 20200714
  Serious: Yes (Hospitalization, Other)
  Sender: FDA-Public Use
  Company Number: JP-PFIZER INC-2020185195

PATIENT
  Age: 85 Year
  Sex: Female
  Weight: 37.4 kg

DRUGS (8)
  1. AZULFIDINE EN-TABS [Suspect]
     Active Substance: SULFASALAZINE
  2. PITAVASTATIN. [Concomitant]
     Active Substance: PITAVASTATIN CALCIUM
     Dosage: 1 MG
  3. SENNOSIDE A+B [Concomitant]
     Active Substance: SENNOSIDES A AND B
     Dosage: 36 MG, 1X/DAY AT BEDTIME
  4. ALFACALCIDOL [Concomitant]
     Active Substance: ALFACALCIDOL
     Dosage: 1 UG
  5. RHEUMATREX [Suspect]
     Active Substance: METHOTREXATE SODIUM
     Indication: RHEUMATOID ARTHRITIS
     Dosage: 4 MG, 2X/WEEK
     Route: 048
     Dates: start: 2009, end: 20200407
  6. LANSOPRAZOLE. [Concomitant]
     Active Substance: LANSOPRAZOLE
     Dosage: 15 MG, 1X/DAY IN THE EVENING
  7. CELECOX [Concomitant]
     Active Substance: CELECOXIB
     Dosage: 200 MG, 2X/DAY MORNING AND EVENING
  8. AMLODIPINE [Concomitant]
     Active Substance: AMLODIPINE BESYLATE
     Dosage: 5 MG, 1X/DAY IN THE MORNING

REACTIONS (4)
  - Pancytopenia [Recovering/Resolving]
  - C-reactive protein increased [Recovering/Resolving]
  - Skin erosion [Unknown]
  - Drug eruption [Unknown]

NARRATIVE: CASE EVENT DATE: 20200404
